FAERS Safety Report 9431432 (Version 3)
Quarter: 2013Q3

REPORT INFORMATION
  Report Type: Spontaneous
  Country: US (occurrence: US)
  Receive Date: 20130730
  Receipt Date: 20130912
  Transmission Date: 20140515
  Serious: Yes (Other)
  Sender: FDA-Public Use
  Company Number: US-PFIZER INC-2013216867

PATIENT
  Age: 77 Year
  Sex: Female
  Weight: 61.22 kg

DRUGS (3)
  1. PREPARATION H HEMORRHOIDAL SUPPOSITORIES [Suspect]
     Indication: HAEMORRHOIDS
     Dosage: UNK
  2. PREPARATION H HEMORRHOIDAL SUPPOSITORIES [Suspect]
     Dosage: UNK
     Dates: start: 201307
  3. ACTONEL [Concomitant]
     Indication: BONE DENSITY ABNORMAL
     Dosage: UNK

REACTIONS (3)
  - Haemorrhoidal haemorrhage [Unknown]
  - Poor quality drug administered [Unknown]
  - Product packaging issue [Unknown]
